FAERS Safety Report 25939181 (Version 2)
Quarter: 2025Q4

REPORT INFORMATION
  Report Type: Spontaneous
  Country: US (occurrence: None)
  Receive Date: 20251020
  Receipt Date: 20251217
  Transmission Date: 20260117
  Serious: No
  Sender: Alvotech
  Company Number: US-ALVOTECHPMS-2025-ALVOTECHPMS-005364

PATIENT
  Sex: Female

DRUGS (1)
  1. SIMLANDI [Suspect]
     Active Substance: ADALIMUMAB-RYVK
     Indication: Product used for unknown indication
     Dosage: 40 MILLIGRAM/MILLILITERS?FREQUENCY: 2?FREQUENCY TIME: 28 DAYS
     Route: 065
     Dates: start: 20251001

REACTIONS (1)
  - Rash [Unknown]
